FAERS Safety Report 9386119 (Version 1)
Quarter: 2013Q3

REPORT INFORMATION
  Report Type: Spontaneous
  Country: US (occurrence: US)
  Receive Date: 20130707
  Receipt Date: 20130707
  Transmission Date: 20140515
  Serious: No
  Sender: FDA-Public Use
  Company Number: US-ALLERGAN-1303892US

PATIENT
  Age: 73 Year
  Sex: Female

DRUGS (4)
  1. LUMIGAN? 0.01% [Suspect]
     Indication: GLAUCOMA
     Dosage: 1 GTT, BID
     Route: 047
  2. VITAMINS [Concomitant]
     Indication: VITAMIN SUPPLEMENTATION
     Dosage: UNK
  3. ASA [Concomitant]
     Indication: HEART RATE IRREGULAR
     Dosage: 81 MG, QD
     Route: 048
  4. MURO EYE OINTMENT [Concomitant]
     Indication: CORNEAL EROSION
     Dosage: UNK
     Route: 047
     Dates: end: 201301

REACTIONS (2)
  - Inappropriate schedule of drug administration [Unknown]
  - Increased upper airway secretion [Not Recovered/Not Resolved]
